FAERS Safety Report 13913129 (Version 1)
Quarter: 2017Q3

REPORT INFORMATION
  Report Type: Spontaneous
  Country: US (occurrence: US)
  Receive Date: 20170828
  Receipt Date: 20170828
  Transmission Date: 20171127
  Serious: No
  Sender: FDA-Public Use
  Company Number: US-ROCHE-1124121

PATIENT
  Age: 12 Year
  Sex: Male

DRUGS (6)
  1. OMEPRAZOLE. [Concomitant]
     Active Substance: OMEPRAZOLE
  2. ERYTHROPOIETIN ALFA [Concomitant]
  3. NUTROPIN [Suspect]
     Active Substance: SOMATROPIN
     Indication: GROWTH HORMONE DEFICIENCY
  4. KCL [Concomitant]
     Active Substance: POTASSIUM CHLORIDE
  5. CALCITRIOL. [Concomitant]
     Active Substance: CALCITRIOL
  6. DITROPAN [Concomitant]
     Active Substance: OXYBUTYNIN CHLORIDE

REACTIONS (2)
  - White blood cell count decreased [Unknown]
  - Platelet count decreased [Unknown]

NARRATIVE: CASE EVENT DATE: 19980303
